FAERS Safety Report 7736462-1 (Version None)
Quarter: 2011Q3

REPORT INFORMATION
  Report Type: 
  Country: None (occurrence: None)
  Receive Date: 20110908
  Receipt Date: 20110902
  Transmission Date: 20111222
  Serious: Yes (Hospitalization)
  Sender: FDA-Public Use
  Company Number: DE-SANOFI-AVENTIS-2011SA056592

PATIENT
  Age: 74 Year
  Sex: Male

DRUGS (9)
  1. MULTAQ [Suspect]
     Route: 048
     Dates: start: 20110826
  2. RAMIPRIL [Concomitant]
     Route: 048
  3. ALLOPURINOL [Concomitant]
     Route: 048
     Dates: end: 20110101
  4. PRAVASTATIN [Concomitant]
     Route: 048
     Dates: end: 20110101
  5. VERAPAMIL [Concomitant]
     Route: 048
     Dates: end: 20110101
  6. VITAMINE B12 [Concomitant]
     Indication: PROPHYLAXIS AGAINST ALCOHOLIC WITHDRAWAL SYNDROME
     Route: 065
  7. BISOPROLOL FUMARATE [Concomitant]
     Route: 048
  8. SITAGLIPTIN PHOSPHATE [Concomitant]
     Route: 048
  9. ST MARY'S THISTLE [Concomitant]
     Indication: PROPHYLAXIS AGAINST ALCOHOLIC WITHDRAWAL SYNDROME
     Route: 065

REACTIONS (8)
  - HYPERHIDROSIS [None]
  - MALAISE [None]
  - BLOOD CREATININE INCREASED [None]
  - BLOOD POTASSIUM INCREASED [None]
  - GLOMERULAR FILTRATION RATE DECREASED [None]
  - BRADYCARDIA [None]
  - ANXIETY [None]
  - LIVER FUNCTION TEST ABNORMAL [None]
